FAERS Safety Report 5208942-4 (Version None)
Quarter: 2007Q1

REPORT INFORMATION
  Report Type: 
  Country: None (occurrence: None)
  Receive Date: 20070111
  Receipt Date: 20070111
  Transmission Date: 20070707
  Serious: Yes (Life-Threatening, Hospitalization)
  Sender: FDA-Public Use
  Company Number: None

PATIENT
  Age: 30 Year
  Sex: Male
  Weight: 76 kg

DRUGS (17)
  1. CYTOXAN   UCB TRANSPLANT [Suspect]
     Dosage: 4400MG/QD/IV
     Route: 042
     Dates: start: 20021201, end: 20061205
  2. TBI [Suspect]
     Dosage: 1200CGY
     Dates: start: 20061128, end: 20061201
  3. MYCELEX [Concomitant]
  4. CIPROFLOXACIN [Concomitant]
  5. CASPOFUNGIN [Concomitant]
  6. LINEZOLID [Concomitant]
  7. MEROPENEM [Concomitant]
  8. GANCICLOVIR [Concomitant]
  9. ESOMEPRAZOLE MAGNESIUM [Concomitant]
  10. PENTAMIDINE ISETHIONATE [Concomitant]
  11. PHENYTOIN SODIUM CAP [Concomitant]
  12. CYCLOSPORINE [Concomitant]
  13. ACTIGALL [Concomitant]
  14. PHENAZOPYRIDINE HCL TAB [Concomitant]
  15. THIAMINE [Concomitant]
  16. VANCOMYCIN [Concomitant]
  17. FOSCARNET [Concomitant]

REACTIONS (2)
  - PULMONARY ALVEOLAR HAEMORRHAGE [None]
  - RESPIRATORY FAILURE [None]
